FAERS Safety Report 5795781 (Version 2)
Quarter: 2017Q3

REPORT INFORMATION
  Report Type: Spontaneous
  Country: US (occurrence: US)
  Receive Date: 20050504
  Receipt Date: 20170929
  Transmission Date: 20171128
  Serious: Yes (Hospitalization)
  Sender: FDA-Public Use
  Company Number: GXKR2005US00953

PATIENT
  Age: 24 Year
  Sex: Male

DRUGS (8)
  1. TRAMADOL. [Concomitant]
     Active Substance: TRAMADOL
     Indication: NEURALGIA
     Dosage: 50 MG, BID
     Route: 065
  2. TRAMADOL. [Concomitant]
     Active Substance: TRAMADOL
     Dosage: 50 MG, TID
     Route: 065
  3. OXCARBAZEPINE. [Concomitant]
     Active Substance: OXCARBAZEPINE
     Indication: NEURALGIA
     Dosage: 300 MG, QD
     Route: 065
  4. AMANTADINE. [Suspect]
     Active Substance: AMANTADINE HYDROCHLORIDE
     Dosage: 100 MG, BID
     Route: 065
  5. DIAZEPAM. [Suspect]
     Active Substance: DIAZEPAM
     Indication: PRODUCT USED FOR UNKNOWN INDICATION
     Route: 065
  6. AMANTADINE. [Suspect]
     Active Substance: AMANTADINE HYDROCHLORIDE
     Indication: PRODUCT USED FOR UNKNOWN INDICATION
     Dosage: 50 MG, BID
     Route: 065
  7. METHADONE [Suspect]
     Active Substance: METHADONE HYDROCHLORIDE
     Indication: PRODUCT USED FOR UNKNOWN INDICATION
     Route: 065
  8. GABAPENTIN. [Concomitant]
     Active Substance: GABAPENTIN
     Indication: NEURALGIA
     Dosage: 3300 MG, QD
     Route: 065

REACTIONS (10)
  - Abnormal behaviour [Recovered/Resolved with Sequelae]
  - Brachial plexus injury [Unknown]
  - Coma [Recovering/Resolving]
  - Therapeutic response unexpected [Unknown]
  - Cognitive disorder [Recovered/Resolved with Sequelae]
  - Hypoxic-ischaemic encephalopathy [Recovered/Resolved with Sequelae]
  - Cardiopulmonary failure [Recovering/Resolving]
  - Incontinence [Unknown]
  - Limb injury [Unknown]
  - Accidental overdose [Recovered/Resolved with Sequelae]
